FAERS Safety Report 15377917 (Version 1)
Quarter: 2018Q3

REPORT INFORMATION
  Report Type: Spontaneous
  Country: US (occurrence: US)
  Receive Date: 20180913
  Receipt Date: 20180913
  Transmission Date: 20181010
  Serious: No
  Sender: FDA-Public Use
  Company Number: US-ENDO PHARMACEUTICALS INC-2018-027267

PATIENT
  Sex: Female

DRUGS (2)
  1. OXYCODONE [Suspect]
     Active Substance: OXYCODONE
     Indication: HYSTERECTOMY
  2. IBUPROFEN. [Suspect]
     Active Substance: IBUPROFEN
     Indication: HYSTERECTOMY
     Dosage: UNKNOWN

REACTIONS (1)
  - Nausea [Unknown]
